FAERS Safety Report 4686592-6 (Version None)
Quarter: 2005Q2

REPORT INFORMATION
  Report Type: 
  Country: None (occurrence: None)
  Receive Date: 20050607
  Receipt Date: 20050526
  Transmission Date: 20051028
  Serious: Yes (Hospitalization, Other)
  Sender: FDA-Public Use
  Company Number: 2005049116

PATIENT
  Sex: Female

DRUGS (1)
  1. DILANTIN KAPSEAL [Suspect]
     Indication: ILL-DEFINED DISORDER
     Dosage: 260 MG (2 IN 1 D), ORAL
     Route: 048
     Dates: end: 20050301

REACTIONS (3)
  - ANTICONVULSANT DRUG LEVEL INCREASED [None]
  - CARBON DIOXIDE INCREASED [None]
  - CEREBROVASCULAR ACCIDENT [None]
